FAERS Safety Report 9940943 (Version 3)
Quarter: 2014Q2

REPORT INFORMATION
  Report Type: Spontaneous
  Country: US (occurrence: US)
  Receive Date: 20140303
  Receipt Date: 20140617
  Transmission Date: 20141212
  Serious: Yes (Hospitalization, Other)
  Sender: FDA-Public Use
  Company Number: US-PFIZER INC-2014057040

PATIENT
  Age: 33 Year
  Sex: Female

DRUGS (2)
  1. CHANTIX [Suspect]
     Dosage: UNK
     Dates: start: 20090930, end: 20130930
  2. CHANTIX [Suspect]
     Dosage: 0.5 MG AND 1MG
     Dates: start: 20130930, end: 20131126

REACTIONS (2)
  - Intentional overdose [Unknown]
  - Suicide attempt [Unknown]
